FAERS Safety Report 8328829-8 (Version None)
Quarter: 2012Q2

REPORT INFORMATION
  Report Type: 
  Country: None (occurrence: None)
  Receive Date: 20120502
  Receipt Date: 20120420
  Transmission Date: 20120825
  Serious: Yes (Other)
  Sender: FDA-Public Use
  Company Number: PHFR2012GB002526

PATIENT
  Age: 39 Year
  Sex: Female

DRUGS (4)
  1. ESTRADERM [Suspect]
     Indication: MENOPAUSE
  2. ESTROGEL [Concomitant]
     Dosage: 100 MG, 5/6 PUMPS DAILY
  3. TESTIM [Concomitant]
     Indication: MENOPAUSE
  4. ESTROGEL [Concomitant]
     Indication: MENOPAUSE
     Dosage: 100 MG, 4 PUMPS DAILY

REACTIONS (6)
  - FATIGUE [None]
  - ANXIETY [None]
  - HOT FLUSH [None]
  - PANIC ATTACK [None]
  - DEPRESSION [None]
  - BLOOD OESTROGEN DECREASED [None]
